FAERS Safety Report 17790852 (Version 1)
Quarter: 2020Q2

REPORT INFORMATION
  Report Type: Spontaneous
  Country: US (occurrence: US)
  Receive Date: 20200514
  Receipt Date: 20200514
  Transmission Date: 20200714
  Serious: No
  Sender: FDA-Public Use
  Company Number: None

PATIENT
  Age: 63 Year
  Sex: Male
  Weight: 81.9 kg

DRUGS (9)
  1. REPATHA [Concomitant]
     Active Substance: EVOLOCUMAB
  2. SLO-MAG (MAGNESIUM CHLORIDE ANHYDROUS) [Concomitant]
     Active Substance: MAGNESIUM CHLORIDE ANHYDROUS
  3. VITAMIN B COMPLEX [Concomitant]
     Active Substance: CYANOCOBALAMIN\DEXPANTHENOL\NIACINAMIDE\PYRIDOXINE HYDROCHLORIDE\RIBOFLAVIN 5^-PHOSPHATE SODIUM\THIAMINE HYDROCHLORIDE\VITAMIN B COMPLEX
  4. RAMIPRIL. [Concomitant]
     Active Substance: RAMIPRIL
  5. COENZYME Q10 [Concomitant]
     Active Substance: UBIDECARENONE
  6. RYBELSUS [Suspect]
     Active Substance: SEMAGLUTIDE
     Indication: TYPE 2 DIABETES MELLITUS
     Dosage: ?          QUANTITY:1 TABLET(S);?
     Route: 048
     Dates: start: 20200505, end: 20200513
  7. CLONAZEPAM. [Concomitant]
     Active Substance: CLONAZEPAM
  8. MERAPROPOLOL SUCCINATE [Concomitant]
  9. ALPRAZOLAM. [Concomitant]
     Active Substance: ALPRAZOLAM

REACTIONS (2)
  - Vomiting [None]
  - Diarrhoea [None]

NARRATIVE: CASE EVENT DATE: 20200512
